FAERS Safety Report 13983070 (Version 1)
Quarter: 2017Q3

REPORT INFORMATION
  Report Type: Spontaneous
  Country: US (occurrence: US)
  Receive Date: 20170918
  Receipt Date: 20170918
  Transmission Date: 20171128
  Serious: No
  Sender: FDA-Public Use
  Company Number: None

PATIENT
  Age: 56 Year
  Sex: Female

DRUGS (4)
  1. PREDNISONE. [Concomitant]
     Active Substance: PREDNISONE
  2. REMICADE [Suspect]
     Active Substance: INFLIXIMAB
  3. AZULFIDINE [Suspect]
     Active Substance: SULFASALAZINE
     Indication: COLITIS ULCERATIVE
  4. HUMIRA [Concomitant]
     Active Substance: ADALIMUMAB

REACTIONS (4)
  - Drug intolerance [None]
  - Intestinal fistula [None]
  - Urticaria [None]
  - Colitis ulcerative [None]
